FAERS Safety Report 9506787 (Version 1)
Quarter: 2013Q3

REPORT INFORMATION
  Report Type: Spontaneous
  Country: JP (occurrence: None)
  Receive Date: 20130904
  Receipt Date: 20130904
  Transmission Date: 20140515
  Serious: Yes (Life-Threatening, Hospitalization)
  Sender: FDA-Public Use
  Company Number: 2013/167

PATIENT
  Age: 66 Year
  Sex: Male

DRUGS (3)
  1. AMLODIPINE [Suspect]
     Indication: PRINZMETAL ANGINA
  2. NICORANDIL [Suspect]
  3. TRANSDERMAL NITROGLYCERINE PATCH (NO PREF.NAME) [Concomitant]

REACTIONS (9)
  - Cardio-respiratory arrest [None]
  - Arteriospasm coronary [None]
  - Anastomotic leak [None]
  - Dizziness [None]
  - Cold sweat [None]
  - Fall [None]
  - Ventricular fibrillation [None]
  - Electrocardiogram ST segment elevation [None]
  - Drug withdrawal syndrome [None]
